FAERS Safety Report 14248072 (Version 1)
Quarter: 2017Q4

REPORT INFORMATION
  Report Type: Report from Study
  Country: None (occurrence: US)
  Receive Date: 20171204
  Receipt Date: 20171204
  Transmission Date: 20180321
  Serious: Yes (Hospitalization)
  Sender: FDA-Public Use
  Company Number: US-ABBVIE-17K-163-2177873-00

PATIENT
  Age: 64 Year
  Sex: Male
  Weight: 181.6 kg

DRUGS (1)
  1. HUMIRA [Suspect]
     Active Substance: ADALIMUMAB
     Indication: PSORIATIC ARTHROPATHY
     Route: 058

REACTIONS (5)
  - Cardiac disorder [Unknown]
  - Renal failure [Unknown]
  - Fall [Unknown]
  - Joint injury [Unknown]
  - Pneumonia [Unknown]
